FAERS Safety Report 20627593 (Version 3)
Quarter: 2022Q3

REPORT INFORMATION
  Report Type: Spontaneous
  Country: US (occurrence: US)
  Receive Date: 20220323
  Receipt Date: 20220907
  Transmission Date: 20221027
  Serious: Yes (Hospitalization, Other)
  Sender: FDA-Public Use
  Company Number: US-UCBSA-2021042457

PATIENT
  Sex: Female
  Weight: 76.203 kg

DRUGS (1)
  1. CIMZIA [Suspect]
     Active Substance: CERTOLIZUMAB PEGOL
     Indication: Rheumatoid arthritis
     Dosage: 400 MILLIGRAM, EV 4 WEEKS
     Route: 058
     Dates: start: 202006

REACTIONS (7)
  - Spinal decompression [Unknown]
  - Back pain [Unknown]
  - Nerve compression [Unknown]
  - Spinal operation [Unknown]
  - Chest pain [Unknown]
  - Hypoaesthesia [Unknown]
  - Anxiety [Unknown]
